FAERS Safety Report 16201798 (Version 1)
Quarter: 2019Q2

REPORT INFORMATION
  Report Type: Spontaneous
  Country: US (occurrence: US)
  Receive Date: 20190416
  Receipt Date: 20190416
  Transmission Date: 20190711
  Serious: No
  Sender: FDA-Public Use
  Company Number: US-TEVA-2019-US-1034887

PATIENT
  Age: 75 Year
  Sex: Male

DRUGS (1)
  1. AUSTEDO [Suspect]
     Active Substance: DEUTETRABENAZINE

REACTIONS (4)
  - Dysstasia [Unknown]
  - Walking aid user [Unknown]
  - Withdrawal syndrome [Unknown]
  - Malaise [Unknown]
